FAERS Safety Report 5469150-5 (Version None)
Quarter: 2007Q3

REPORT INFORMATION
  Report Type: 
  Country: None (occurrence: None)
  Receive Date: 20070927
  Receipt Date: 20070919
  Transmission Date: 20080115
  Serious: Yes (Hospitalization, Other)
  Sender: FDA-Public Use
  Company Number: PHEH2007US10918

PATIENT
  Age: 2 Year
  Sex: Male

DRUGS (1)
  1. TOBI [Suspect]

REACTIONS (4)
  - DEVICE OCCLUSION [None]
  - MECHANICAL VENTILATION COMPLICATION [None]
  - OXYGEN SATURATION DECREASED [None]
  - RESPIRATORY DISORDER [None]
